FAERS Safety Report 5807360-5 (Version None)
Quarter: 2008Q3

REPORT INFORMATION
  Report Type: 
  Country: None (occurrence: None)
  Receive Date: 20080711
  Receipt Date: 20080704
  Transmission Date: 20090109
  Serious: Yes (Death)
  Sender: FDA-Public Use
  Company Number: GB-TEVA-173997ISR

PATIENT
  Age: 27 Year
  Sex: Female

DRUGS (1)
  1. BISOPROLOL FUMARATE [Suspect]

REACTIONS (1)
  - LEFT VENTRICULAR FAILURE [None]
